FAERS Safety Report 10268810 (Version 5)
Quarter: 2014Q3

REPORT INFORMATION
  Report Type: Report from Study
  Country: US (occurrence: US)
  Receive Date: 20140630
  Receipt Date: 20140916
  Transmission Date: 20150326
  Serious: Yes (Death, Hospitalization)
  Sender: FDA-Public Use
  Company Number: PHHY2014US077636

PATIENT
  Age: 67 Year
  Sex: Female

DRUGS (6)
  1. 5-FLUOROURACIL [Suspect]
     Active Substance: FLUOROURACIL
     Indication: COLORECTAL CANCER METASTATIC
     Dosage: 400 MG/M2 ONCE
     Route: 040
     Dates: start: 20130911, end: 20140429
  2. 5-FLUOROURACIL [Suspect]
     Active Substance: FLUOROURACIL
     Dosage: 2400 MG/M2 ONCE
     Route: 042
     Dates: start: 20130911, end: 20140429
  3. BEVACIZUMAB [Suspect]
     Active Substance: BEVACIZUMAB
     Indication: COLORECTAL CANCER METASTATIC
     Dosage: 5 MG/KG, 1 IN 2 WEEKS
     Route: 042
     Dates: start: 20130911, end: 20140429
  4. IRINOTECAN [Suspect]
     Active Substance: IRINOTECAN
     Indication: COLORECTAL CANCER METASTATIC
     Dosage: 180 MG/M2 ONCE
     Route: 042
     Dates: start: 20131009, end: 20140429
  5. OXALIPLATIN. [Suspect]
     Active Substance: OXALIPLATIN
     Indication: COLORECTAL CANCER METASTATIC
     Dosage: 85 MG/M2 ONCE
     Route: 042
     Dates: start: 20130911, end: 20131120
  6. CALCIUM FOLINATE [Suspect]
     Active Substance: LEUCOVORIN CALCIUM
     Indication: COLORECTAL CANCER METASTATIC
     Dosage: 400 MG/M2 ONCE
     Route: 042
     Dates: start: 20140423, end: 20140429

REACTIONS (12)
  - Neutropenia [Fatal]
  - Circulatory collapse [Unknown]
  - Blood urea increased [Unknown]
  - Blood creatinine increased [Unknown]
  - Brain natriuretic peptide increased [Unknown]
  - Asthenia [Unknown]
  - Troponin increased [Unknown]
  - Sepsis [Fatal]
  - Blood lactic acid increased [Unknown]
  - Hypotension [Unknown]
  - Tachycardia [Unknown]
  - Eating disorder [Unknown]

NARRATIVE: CASE EVENT DATE: 20140428
